FAERS Safety Report 15576579 (Version 4)
Quarter: 2018Q4

REPORT INFORMATION
  Report Type: Spontaneous
  Country: US (occurrence: US)
  Receive Date: 20181101
  Receipt Date: 20181130
  Transmission Date: 20190205
  Serious: No
  Sender: FDA-Public Use
  Company Number: US-MILLICENT HOLDINGS LTD.-MILL20180622

PATIENT
  Age: 41 Year
  Sex: Female

DRUGS (8)
  1. FEMRING [Suspect]
     Active Substance: ESTRADIOL ACETATE
     Indication: MIGRAINE
  2. FEMRING [Suspect]
     Active Substance: ESTRADIOL ACETATE
     Indication: VULVOVAGINAL DRYNESS
  3. FEMRING [Suspect]
     Active Substance: ESTRADIOL ACETATE
     Indication: ASTHENIA
  4. FEMRING [Suspect]
     Active Substance: ESTRADIOL ACETATE
     Indication: MENOPAUSE
  5. FEMRING [Suspect]
     Active Substance: ESTRADIOL ACETATE
     Indication: MENOPAUSAL SYMPTOMS
     Dosage: 0.10 MG
     Route: 067
  6. FEMRING [Suspect]
     Active Substance: ESTRADIOL ACETATE
     Indication: INSOMNIA
  7. FEMRING [Suspect]
     Active Substance: ESTRADIOL ACETATE
     Indication: NIGHT SWEATS
     Dosage: 1 RING
     Route: 067
  8. FEMRING [Suspect]
     Active Substance: ESTRADIOL ACETATE
     Indication: HOT FLUSH

REACTIONS (7)
  - Drug ineffective [Not Recovered/Not Resolved]
  - Vulvovaginal dryness [Not Recovered/Not Resolved]
  - Night sweats [Not Recovered/Not Resolved]
  - Migraine [Not Recovered/Not Resolved]
  - Hot flush [Not Recovered/Not Resolved]
  - Insomnia [Not Recovered/Not Resolved]
  - Asthenia [Not Recovered/Not Resolved]

NARRATIVE: CASE EVENT DATE: 20181022
